FAERS Safety Report 25578317 (Version 1)
Quarter: 2025Q3

REPORT INFORMATION
  Report Type: Spontaneous
  Country: CN (occurrence: CN)
  Receive Date: 20250718
  Receipt Date: 20250718
  Transmission Date: 20251020
  Serious: Yes (Life-Threatening, Hospitalization)
  Sender: PURDUE
  Company Number: CN-NAPPMUNDI-GBR-2025-0127235

PATIENT
  Age: 71 Year
  Sex: Female
  Weight: 55 kg

DRUGS (1)
  1. OXYCODONE HYDROCHLORIDE [Suspect]
     Active Substance: OXYCODONE HYDROCHLORIDE
     Indication: Pain
     Dosage: 40 MILLIGRAM, BID
     Route: 048
     Dates: start: 20250702, end: 20250702

REACTIONS (7)
  - Cardiac failure acute [Recovering/Resolving]
  - Loss of consciousness [Recovered/Resolved]
  - Respiratory failure [Recovering/Resolving]
  - Adverse drug reaction [Unknown]
  - Hyperkalaemia [Unknown]
  - Ileus paralytic [Unknown]
  - Pleural effusion [Unknown]

NARRATIVE: CASE EVENT DATE: 20250701
